FAERS Safety Report 10517886 (Version 6)
Quarter: 2014Q4

REPORT INFORMATION
  Report Type: Spontaneous
  Country: US (occurrence: US)
  Receive Date: 20141015
  Receipt Date: 20141119
  Transmission Date: 20150528
  Serious: Yes (Death, Hospitalization, Other)
  Sender: FDA-Public Use
  Company Number: US-UNITED THERAPEUTICS-UNT-2014-008783

PATIENT
  Age: 69 Year
  Sex: Male
  Weight: 63.49 kg

DRUGS (5)
  1. TYVASO [Suspect]
     Active Substance: TREPROSTINIL
     Indication: PULMONARY ARTERIAL HYPERTENSION
     Dosage: 96 ?G, 5XD
     Dates: start: 20110322
  2. TYVASO [Suspect]
     Active Substance: TREPROSTINIL
     Dosage: 96 ?G, 5XD
     Dates: start: 20110322
  3. TYVASO [Suspect]
     Active Substance: TREPROSTINIL
     Dosage: 96 ?G, 5XD
     Dates: start: 20110322
  4. CIALIS [Concomitant]
     Active Substance: TADALAFIL
     Indication: PRODUCT USED FOR UNKNOWN INDICATION
  5. LETAIRIS [Concomitant]
     Active Substance: AMBRISENTAN
     Indication: PRODUCT USED FOR UNKNOWN INDICATION

REACTIONS (2)
  - Pulmonary arterial hypertension [Fatal]
  - Malaise [Unknown]

NARRATIVE: CASE EVENT DATE: 2014
